FAERS Safety Report 23166911 (Version 1)
Quarter: 2023Q4

REPORT INFORMATION
  Report Type: Spontaneous
  Country: IT (occurrence: IT)
  Receive Date: 20231109
  Receipt Date: 20231109
  Transmission Date: 20240109
  Serious: Yes (Death, Hospitalization)
  Sender: FDA-Public Use
  Company Number: IT-SANDOZ-SDZ2023IT000297

PATIENT
  Age: 71 Year
  Sex: Female
  Weight: 52 kg

DRUGS (20)
  1. GEMCITABINE [Suspect]
     Active Substance: GEMCITABINE
     Indication: Pancreatic carcinoma metastatic
     Dosage: 1580 MILLIGRAM
     Route: 042
     Dates: start: 20230126
  2. PACLITAXEL [Suspect]
     Active Substance: PACLITAXEL
     Indication: Pancreatic carcinoma metastatic
     Dosage: 197.5 MILLIGRAM
     Route: 042
     Dates: start: 20230126
  3. MIRTAZAPINE [Concomitant]
     Active Substance: MIRTAZAPINE
     Indication: Depression
     Dosage: UNK
     Route: 065
     Dates: start: 2022
  4. MORPHINE [Concomitant]
     Active Substance: MORPHINE
     Indication: Pain
     Dosage: UNK
     Route: 065
     Dates: start: 20230630
  5. ATORVASTATIN [Concomitant]
     Active Substance: ATORVASTATIN
     Indication: Prophylaxis
     Dosage: UNK
     Route: 065
     Dates: start: 2011
  6. INSULIN LISPRO [Concomitant]
     Active Substance: INSULIN LISPRO
     Indication: Type 2 diabetes mellitus
     Dosage: UNK IU/ML
     Route: 065
     Dates: start: 20230508
  7. INSULIN LISPRO [Concomitant]
     Active Substance: INSULIN LISPRO
     Indication: Blood glucose increased
     Dosage: 200 IU/ML
     Route: 065
     Dates: start: 20230331
  8. PANTOPRAZOLE [Concomitant]
     Active Substance: PANTOPRAZOLE
     Indication: Prophylaxis against gastrointestinal ulcer
     Dosage: UNK
     Route: 065
     Dates: start: 2022
  9. PREDNISONE [Concomitant]
     Active Substance: PREDNISONE
     Indication: Fatigue
     Dosage: UNK
     Route: 065
     Dates: start: 20230502
  10. PREDNISONE [Concomitant]
     Active Substance: PREDNISONE
     Indication: Prophylaxis
     Dosage: 5 MG
     Route: 065
     Dates: start: 2022
  11. FERROUS SULFATE [Concomitant]
     Active Substance: FERROUS SULFATE
     Indication: Anaemia
     Dosage: UNK
     Route: 065
     Dates: start: 20230310
  12. OXYCODONE [Concomitant]
     Active Substance: OXYCODONE
     Indication: Abdominal pain
     Dosage: UNK
     Route: 065
     Dates: start: 20230609
  13. ACETAMINOPHEN [Concomitant]
     Active Substance: ACETAMINOPHEN
     Indication: Pancreatic carcinoma
     Dosage: UNK
     Route: 065
     Dates: start: 2022
  14. INSULIN GLARGINE [Concomitant]
     Active Substance: INSULIN GLARGINE
     Indication: Type 2 diabetes mellitus
     Dosage: UNK
     Route: 065
     Dates: start: 20230407
  15. FENTANYL [Concomitant]
     Active Substance: FENTANYL\FENTANYL CITRATE
     Indication: Abdominal pain
     Dosage: UNK
     Route: 065
     Dates: start: 20230519
  16. FENTANYL [Concomitant]
     Active Substance: FENTANYL\FENTANYL CITRATE
     Indication: Pain
     Dosage: UNK
     Route: 065
     Dates: start: 20230609
  17. METHYLPREDNISOLONE [Concomitant]
     Active Substance: METHYLPREDNISOLONE
     Indication: Dyspnoea
     Dosage: UNK
     Route: 065
     Dates: start: 20230130
  18. GABAPENTIN [Concomitant]
     Active Substance: GABAPENTIN
     Indication: Abdominal pain
     Dosage: 400 MILLIGRAM
     Route: 065
  19. GABAPENTIN [Concomitant]
     Active Substance: GABAPENTIN
     Dosage: 100 MILLIGRAM
     Route: 065
  20. GABAPENTIN [Concomitant]
     Active Substance: GABAPENTIN
     Dosage: 300 MILLIGRAM
     Route: 065
     Dates: start: 20230609

REACTIONS (2)
  - Dyspnoea [Recovered/Resolved]
  - General physical health deterioration [Fatal]

NARRATIVE: CASE EVENT DATE: 20230130
